FAERS Safety Report 4765630-6 (Version None)
Quarter: 2005Q3

REPORT INFORMATION
  Report Type: 
  Country: None (occurrence: None)
  Receive Date: 20050907
  Receipt Date: 20050829
  Transmission Date: 20060218
  Serious: Yes (Other)
  Sender: FDA-Public Use
  Company Number: 8011540

PATIENT

DRUGS (1)
  1. KEPPRA [Suspect]

REACTIONS (1)
  - LEUKOPENIA [None]
